FAERS Safety Report 6608413-4 (Version None)
Quarter: 2010Q1

REPORT INFORMATION
  Report Type: 
  Country: None (occurrence: None)
  Receive Date: 20100301
  Receipt Date: 20100223
  Transmission Date: 20100710
  Serious: Yes (Death, Other)
  Sender: FDA-Public Use
  Company Number: TR-ELI_LILLY_AND_COMPANY-TR201002006671

PATIENT

DRUGS (3)
  1. HUMULIN R [Suspect]
     Dosage: 5 U, 3/D
     Route: 064
     Dates: end: 20100206
  2. HUMULIN N [Suspect]
     Dosage: 6 U, EACH EVENING
     Route: 064
     Dates: end: 20100206
  3. VITAMINS NOS [Concomitant]
     Dosage: 1 D/F, DAILY (1/D)
     Route: 064
     Dates: end: 20100206

REACTIONS (3)
  - DEATH NEONATAL [None]
  - DRUG EXPOSURE DURING PREGNANCY [None]
  - PREMATURE BABY [None]
